FAERS Safety Report 25732512 (Version 8)
Quarter: 2025Q4

REPORT INFORMATION
  Report Type: Spontaneous
  Country: UY (occurrence: UY)
  Receive Date: 20250827
  Receipt Date: 20251028
  Transmission Date: 20260119
  Serious: No
  Sender: PFIZER
  Company Number: UY-PFIZER INC-202500168651

PATIENT
  Age: 14 Year
  Sex: Female

DRUGS (3)
  1. GENOTROPIN [Suspect]
     Active Substance: SOMATROPIN
     Indication: Turner^s syndrome
     Dosage: 1.7 MG, 1X/DAY (7 TIMES A WEEK)
     Dates: start: 20130601, end: 20250819
  2. OESTROGEL [ESTRADIOL] [Concomitant]
     Dosage: UNK
  3. LEVOTHYROXINE [Concomitant]
     Active Substance: LEVOTHYROXINE
     Dosage: UNK

REACTIONS (3)
  - Device information output issue [Unknown]
  - Device mechanical issue [Unknown]
  - Drug dose omission by device [Unknown]

NARRATIVE: CASE EVENT DATE: 20250820
